FAERS Safety Report 4952888-3 (Version None)
Quarter: 2006Q1

REPORT INFORMATION
  Report Type: 
  Country: None (occurrence: None)
  Receive Date: 20060324
  Receipt Date: 20060321
  Transmission Date: 20060701
  Serious: Yes (Hospitalization)
  Sender: FDA-Public Use
  Company Number: IE-AVENTIS-200612763GDDC

PATIENT
  Age: 79 Year
  Sex: Male

DRUGS (9)
  1. ARAVA [Suspect]
     Route: 048
  2. PREDNISOLONE [Suspect]
     Route: 048
  3. ETANERCEPT [Suspect]
     Route: 058
     Dates: end: 20060128
  4. DILTIAZEM HCL [Concomitant]
     Dosage: DOSE: UNK
  5. FOSAMAX [Concomitant]
     Dosage: DOSE: UNK
  6. CALCICHEW [Concomitant]
     Dosage: DOSE: UNK
  7. NEXIUM [Concomitant]
     Dosage: DOSE: UNK
  8. DIFENE [Concomitant]
     Dosage: DOSE: UNK
  9. FUROSEMIDE [Concomitant]
     Dosage: DOSE: UNK

REACTIONS (2)
  - CARDIAC FAILURE [None]
  - PNEUMONIA [None]
